FAERS Safety Report 7813805-1 (Version None)
Quarter: 2011Q4

REPORT INFORMATION
  Report Type: 
  Country: None (occurrence: None)
  Receive Date: 20111014
  Receipt Date: 20111007
  Transmission Date: 20120403
  Serious: No
  Sender: FDA-Public Use
  Company Number: US-PFIZER INC-2011237313

PATIENT
  Sex: Female
  Weight: 50.34 kg

DRUGS (6)
  1. VYTORIN [Concomitant]
     Dosage: UNK
  2. AMLODIPINE [Concomitant]
     Dosage: UNK
  3. PREMARIN [Suspect]
     Dosage: UNK
     Route: 067
     Dates: start: 20010101
  4. OMEPRAZOLE [Concomitant]
     Dosage: UNK
  5. PREMARIN [Suspect]
     Indication: MENOPAUSE
     Dosage: UNK
     Dates: start: 20010101
  6. PROGESTERONE [Concomitant]
     Dosage: UNK

REACTIONS (1)
  - VAGINAL INFECTION [None]
